FAERS Safety Report 8987241 (Version 1)
Quarter: 2012Q4

REPORT INFORMATION
  Report Type: 
  Country: FR (occurrence: FR)
  Receive Date: 20121227
  Receipt Date: 20121227
  Transmission Date: 20130627
  Serious: Yes (Hospitalization)
  Sender: FDA-Public Use
  Company Number: FR-ELI_LILLY_AND_COMPANY-FR201212006845

PATIENT
  Age: 66 Year
  Sex: Male

DRUGS (2)
  1. HUMALOG LISPRO [Suspect]
     Dosage: 15 IU, single
     Route: 058
     Dates: start: 20121015, end: 20121015
  2. LEVEMIR [Concomitant]
     Dosage: 15 IU, bid

REACTIONS (1)
  - Wrong drug administered [Recovered/Resolved]
